FAERS Safety Report 9531195 (Version 1)
Quarter: 2013Q3

REPORT INFORMATION
  Report Type: Spontaneous
  Country: US (occurrence: None)
  Receive Date: 20130916
  Receipt Date: 20130916
  Transmission Date: 20140515
  Serious: Yes (Hospitalization, Other)
  Sender: FDA-Public Use
  Company Number: None

PATIENT
  Age: 59 Year
  Sex: Male

DRUGS (8)
  1. HUMIRA PEN [Suspect]
     Dates: start: 20050405
  2. ALENDRONATE [Concomitant]
  3. WELCHOL [Concomitant]
  4. VITAMIN D3 [Concomitant]
  5. BABY ASPIRIN [Concomitant]
  6. B12 [Concomitant]
  7. FISH OIL [Concomitant]
  8. PICOLINATE PLUS [Concomitant]

REACTIONS (5)
  - Pneumonia [None]
  - Legionella infection [None]
  - Balance disorder [None]
  - Fall [None]
  - Immunodeficiency [None]
